FAERS Safety Report 4558370-X (Version None)
Quarter: 2005Q1

REPORT INFORMATION
  Report Type: 
  Country: None (occurrence: None)
  Receive Date: 20050113
  Receipt Date: 20050106
  Transmission Date: 20050727
  Serious: Yes (Life-Threatening)
  Sender: FDA-Public Use
  Company Number: 200110337BYL

PATIENT
  Age: 66 Year
  Sex: Male
  Weight: 62 kg

DRUGS (5)
  1. PLASMANATE [Suspect]
     Indication: FLUID REPLACEMENT
     Dosage: 1000 ML, TOTAL DAILY, INTRAVENOUS DRIP
     Route: 041
     Dates: start: 20010621
  2. KAKODIN [Concomitant]
  3. MAP [Concomitant]
  4. HABEKACIN [Concomitant]
  5. UNASYN [Concomitant]

REACTIONS (5)
  - ANAPHYLACTIC SHOCK [None]
  - ATRIOVENTRICULAR BLOCK [None]
  - BRADYCARDIA [None]
  - CARDIAC ARREST [None]
  - ERYTHEMA [None]
